FAERS Safety Report 14686755 (Version 7)
Quarter: 2020Q3

REPORT INFORMATION
  Report Type: Report from Study
  Country: US (occurrence: US)
  Receive Date: 20180327
  Receipt Date: 20200716
  Transmission Date: 20201102
  Serious: Yes (Death, Life-Threatening, Hospitalization)
  Sender: FDA-Public Use
  Company Number: US-ACTELION-A-NJ2018-169719

PATIENT
  Age: 77 Year
  Sex: Female
  Weight: 49.43 kg

DRUGS (9)
  1. POTASSIUM CHLORIDE. [Concomitant]
     Active Substance: POTASSIUM CHLORIDE
     Dosage: 20 MEQ, QD
     Dates: end: 20200615
  2. ADEMPAS [Concomitant]
     Active Substance: RIOCIGUAT
     Dosage: 2.5 MG, TID
     Dates: start: 20170706, end: 20200615
  3. OPSUMIT [Suspect]
     Active Substance: MACITENTAN
     Indication: PULMONARY HYPERTENSION
     Dosage: 10 MG, QD
     Route: 048
     Dates: start: 20140619, end: 20200615
  4. UPTRAVI [Suspect]
     Active Substance: SELEXIPAG
     Dosage: 1800 MCG, BID
     Route: 048
     Dates: start: 201605
  5. UPTRAVI [Suspect]
     Active Substance: SELEXIPAG
     Indication: PULMONARY HYPERTENSION
     Dosage: 1600 MCG, BID
     Route: 048
     Dates: start: 20160518, end: 20200615
  6. ELIQUIS [Concomitant]
     Active Substance: APIXABAN
  7. AMLODIPINE [Concomitant]
     Active Substance: AMLODIPINE BESYLATE
     Dosage: 10 MG, QD
     Dates: end: 20200615
  8. FUROSEMIDE. [Concomitant]
     Active Substance: FUROSEMIDE
     Dosage: 40 MG, QD
     Dates: end: 20200615
  9. LETAIRIS [Concomitant]
     Active Substance: AMBRISENTAN
     Dosage: 5 MG, BID
     Dates: end: 20200615

REACTIONS (11)
  - Pulmonary embolism [Recovering/Resolving]
  - Condition aggravated [Fatal]
  - Sepsis [Unknown]
  - Acute respiratory failure [Fatal]
  - Cardiac failure [Unknown]
  - Anxiety [Unknown]
  - Dementia [Unknown]
  - Irritability [Unknown]
  - Pulmonary arterial hypertension [Fatal]
  - Treatment noncompliance [Unknown]
  - Mood swings [Unknown]

NARRATIVE: CASE EVENT DATE: 20180412
